FAERS Safety Report 16505577 (Version 6)
Quarter: 2020Q1

REPORT INFORMATION
  Report Type: Report from Study
  Country: US (occurrence: US)
  Receive Date: 20190701
  Receipt Date: 20200311
  Transmission Date: 20200409
  Serious: Yes (Other)
  Sender: FDA-Public Use
  Company Number: US-CLOVIS ONCOLOGY-CLO-2019-001041

PATIENT
  Age: 51 Year
  Sex: Female

DRUGS (9)
  1. RUBRACA [Suspect]
     Active Substance: RUCAPARIB CAMSYLATE
     Dosage: 600 MG, BID
     Dates: start: 20190601, end: 2019
  2. RUBRACA [Suspect]
     Active Substance: RUCAPARIB CAMSYLATE
     Dosage: 300 MG, BID
     Route: 048
     Dates: start: 20190819, end: 2019
  3. RUBRACA [Suspect]
     Active Substance: RUCAPARIB CAMSYLATE
     Dosage: 300 MG DAILY, EVERY OTHER DAY
     Route: 048
     Dates: start: 20190927
  4. RUBRACA [Suspect]
     Active Substance: RUCAPARIB CAMSYLATE
     Dosage: 300 MG MORNING / 600 MG EVENING
     Route: 048
     Dates: start: 20190618, end: 2019
  5. RUBRACA [Suspect]
     Active Substance: RUCAPARIB CAMSYLATE
     Dosage: 300 MG IN AM, 600 MG IN PM
     Route: 048
     Dates: start: 20190524, end: 20190723
  6. RUBRACA [Suspect]
     Active Substance: RUCAPARIB CAMSYLATE
     Dosage: 300MG DAILY WITH 300MG BID
     Route: 048
     Dates: start: 20190927
  7. RUBRACA [Suspect]
     Active Substance: RUCAPARIB CAMSYLATE
     Indication: OVARIAN CANCER
     Dosage: 600 MG, BID
     Dates: start: 20190524, end: 20190618
  8. RUBRACA [Suspect]
     Active Substance: RUCAPARIB CAMSYLATE
     Dosage: 300 MG DAILY/300 MG BID, EVERY OTHER DAY
     Route: 048
     Dates: start: 20190927
  9. AVASTIN [Suspect]
     Active Substance: BEVACIZUMAB
     Indication: PRODUCT USED FOR UNKNOWN INDICATION

REACTIONS (26)
  - Fatigue [Not Recovered/Not Resolved]
  - Rash [Not Recovered/Not Resolved]
  - Product dose omission [Unknown]
  - Myalgia [Unknown]
  - Increased upper airway secretion [Recovering/Resolving]
  - Anaemia [Unknown]
  - Renal function test abnormal [Unknown]
  - Gait disturbance [Unknown]
  - Stomatitis [Recovering/Resolving]
  - Nasal disorder [Unknown]
  - Peripheral swelling [Recovering/Resolving]
  - Urinary tract infection [Recovering/Resolving]
  - Somnolence [Recovering/Resolving]
  - Asthenia [Unknown]
  - Bone marrow failure [Recovering/Resolving]
  - Arthralgia [Not Recovered/Not Resolved]
  - Joint swelling [Recovering/Resolving]
  - Sinusitis [Recovering/Resolving]
  - Arthritis [Unknown]
  - Blister [Recovering/Resolving]
  - Nasal congestion [Not Recovered/Not Resolved]
  - Nausea [Not Recovered/Not Resolved]
  - Urinary retention [Recovering/Resolving]
  - Pain in extremity [Recovering/Resolving]
  - Abdominal pain [Recovering/Resolving]
  - Vomiting [Recovered/Resolved]

NARRATIVE: CASE EVENT DATE: 2019
